FAERS Safety Report 7773273-5 (Version None)
Quarter: 2011Q3

REPORT INFORMATION
  Report Type: 
  Country: None (occurrence: None)
  Receive Date: 20110922
  Receipt Date: 20110913
  Transmission Date: 20111222
  Serious: Yes (Congenital Anomaly, Other)
  Sender: FDA-Public Use
  Company Number: US-ABBOTT-11P-163-0853961-00

PATIENT
  Sex: Male
  Weight: 1.415 kg

DRUGS (2)
  1. KALETRA [Suspect]
     Indication: MATERNAL EXPOSURE DURING PREGNANCY
     Route: 064
  2. COMBIVIR [Suspect]
     Indication: MATERNAL EXPOSURE DURING PREGNANCY
     Route: 062

REACTIONS (7)
  - TRISOMY 21 [None]
  - MATERNAL EXPOSURE DURING PREGNANCY [None]
  - CONGENITAL CHOROID PLEXUS CYST [None]
  - PREMATURE BABY [None]
  - CONGENITAL INTESTINAL MALFORMATION [None]
  - CONGENITAL ANOMALY [None]
  - FOETAL GROWTH RESTRICTION [None]
